FAERS Safety Report 26111825 (Version 1)
Quarter: 2025Q4

REPORT INFORMATION
  Report Type: Spontaneous
  Country: TW (occurrence: TW)
  Receive Date: 20251202
  Receipt Date: 20251202
  Transmission Date: 20260119
  Serious: Yes (Other)
  Sender: ALEXION PHARMACEUTICALS
  Company Number: TW-AstraZeneca-CH-01002988A

PATIENT
  Sex: Male

DRUGS (1)
  1. SOLIRIS [Suspect]
     Active Substance: ECULIZUMAB
     Indication: Paroxysmal nocturnal haemoglobinuria
     Dosage: UNK

REACTIONS (3)
  - Autoimmune haemolytic anaemia [Unknown]
  - Haemolysis [Unknown]
  - Breakthrough haemolysis [Unknown]

NARRATIVE: CASE EVENT DATE: 20210401
